FAERS Safety Report 5935763-7 (Version None)
Quarter: 2008Q4

REPORT INFORMATION
  Report Type: 
  Country: None (occurrence: None)
  Receive Date: 20081029
  Receipt Date: 20081029
  Transmission Date: 20090506
  Serious: Yes (Life-Threatening, Hospitalization)
  Sender: FDA-Public Use
  Company Number: None

PATIENT
  Age: 65 Year
  Sex: Male
  Weight: 118.39 kg

DRUGS (1)
  1. SUMATRIPTAN SUCCINATE [Suspect]
     Indication: MIGRAINE
     Dosage: ? MG ONCE PO
     Route: 048
     Dates: start: 20080213, end: 20080213

REACTIONS (9)
  - AGGRESSION [None]
  - AGITATION [None]
  - CONFUSIONAL STATE [None]
  - HEADACHE [None]
  - HYPERREFLEXIA [None]
  - MENTAL STATUS CHANGES [None]
  - PYREXIA [None]
  - SELF-MEDICATION [None]
  - SEROTONIN SYNDROME [None]
